FAERS Safety Report 4977548-4 (Version None)
Quarter: 2006Q2

REPORT INFORMATION
  Report Type: 
  Country: None (occurrence: None)
  Receive Date: 20060414
  Receipt Date: 20060403
  Transmission Date: 20061013
  Serious: Yes (Hospitalization)
  Sender: FDA-Public Use
  Company Number: 200610927BWH

PATIENT
  Age: 55 Year
  Sex: Female
  Weight: 86.637 kg

DRUGS (9)
  1. NEXAVAR [Suspect]
     Indication: RENAL CELL CARCINOMA STAGE UNSPECIFIED
     Dosage: 400 MG, BID, ORAL; SEE IMAGE
     Route: 048
     Dates: start: 20060120, end: 20060213
  2. NEXAVAR [Suspect]
     Indication: RENAL CELL CARCINOMA STAGE UNSPECIFIED
     Dosage: 400 MG, BID, ORAL; SEE IMAGE
     Route: 048
     Dates: start: 20060302
  3. ASPIRIN [Suspect]
     Indication: ATRIAL FIBRILLATION
     Dosage: 81 MG, TOTAL DAILY
     Dates: start: 20050201, end: 20060213
  4. COUMADIN [Suspect]
     Indication: ATRIAL FIBRILLATION
     Dates: start: 20050201, end: 20060213
  5. CARTIA XG [Concomitant]
  6. NEURONTIN [Concomitant]
  7. LEXAPRO [Concomitant]
  8. CARTIA XT [Concomitant]
  9. ZOCOR [Concomitant]

REACTIONS (14)
  - ABDOMINAL PAIN UPPER [None]
  - ALOPECIA [None]
  - ASTHENIA [None]
  - BLOOD PRESSURE SYSTOLIC DECREASED [None]
  - DIZZINESS [None]
  - DRY SKIN [None]
  - FAECES DISCOLOURED [None]
  - GASTRITIS EROSIVE [None]
  - HAEMORRHAGE [None]
  - OESOPHAGITIS [None]
  - PAIN IN EXTREMITY [None]
  - PALPITATIONS [None]
  - PLANTAR FASCIITIS [None]
  - THROAT IRRITATION [None]
